FAERS Safety Report 10446224 (Version 5)
Quarter: 2015Q1

REPORT INFORMATION
  Report Type: Report from Study
  Country: HU (occurrence: HU)
  Receive Date: 20140911
  Receipt Date: 20150320
  Transmission Date: 20150720
  Serious: Yes (Death, Hospitalization, Disabling)
  Sender: FDA-Public Use
  Company Number: HU-ROCHE-1071710

PATIENT
  Age: 81 Year
  Sex: Female
  Weight: 46 kg

DRUGS (38)
  1. KALIUM CHLORATUM [Concomitant]
     Active Substance: POTASSIUM CHLORIDE
     Indication: HYPOKALAEMIA
     Dosage: 2X600 MG
     Route: 065
     Dates: start: 20120530, end: 20120603
  2. DIMETINDENE [Concomitant]
     Dosage: 1X4 MG
     Route: 065
     Dates: start: 20120530, end: 20120530
  3. FAMOTIDINE. [Concomitant]
     Active Substance: FAMOTIDINE
     Route: 065
     Dates: start: 20120523, end: 20120529
  4. DIMETINDENE [Concomitant]
     Dosage: 1X 4MG
     Route: 065
     Dates: start: 20120509, end: 20120509
  5. ACICLOVIR [Concomitant]
     Active Substance: ACYCLOVIR
     Indication: FEBRILE NEUTROPENIA
     Dosage: 5X400 MG
     Route: 065
     Dates: start: 20120525, end: 20120529
  6. KALIUM CHLORATUM [Concomitant]
     Active Substance: POTASSIUM CHLORIDE
     Dosage: 2X600 MG
     Route: 065
     Dates: start: 20120620, end: 20120624
  7. PARACETAMOLUM [Concomitant]
     Dosage: 1X1000 MG
     Route: 065
     Dates: start: 20120530, end: 20120530
  8. FAMOTIDINE. [Concomitant]
     Active Substance: FAMOTIDINE
     Dosage: 2X40MG
     Route: 065
     Dates: start: 20120120, end: 20120625
  9. MOXIFLOXACIN [Concomitant]
     Active Substance: MOXIFLOXACIN
     Indication: DIARRHOEA
     Dosage: 1X400 MG
     Route: 065
     Dates: start: 20120711, end: 20120717
  10. PREDNISOLONE. [Suspect]
     Active Substance: PREDNISOLONE
     Dosage: 1X 100MG
     Route: 048
     Dates: start: 20120516, end: 20120516
  11. CITROKALCIUM [Concomitant]
     Indication: OSTEOPOROSIS
     Dosage: 2X600 MG
     Route: 065
     Dates: start: 20020110
  12. DIMETINDENE [Concomitant]
     Route: 065
     Dates: start: 20120716, end: 20120716
  13. DIMETINDENE [Concomitant]
     Dosage: 1X 4MG
     Route: 065
     Dates: start: 20120516, end: 20120516
  14. FLUCONAZOLE. [Concomitant]
     Active Substance: FLUCONAZOLE
     Indication: FEBRILE NEUTROPENIA
     Dosage: 1X200 MG
     Route: 065
     Dates: start: 20120525, end: 20120529
  15. METRONIDAZOLE. [Concomitant]
     Active Substance: METRONIDAZOLE
     Indication: DIARRHOEA
     Route: 065
     Dates: start: 20120711, end: 20120720
  16. CYCLOPHOSPHAMIDE. [Suspect]
     Active Substance: CYCLOPHOSPHAMIDE
     Indication: DIFFUSE LARGE B-CELL LYMPHOMA
     Dosage: DOSE OF LAST CYCLOPHOSPHAMIDE : 1027.5 MG, DATE OF MOST RECENT DOSE PRIOR TO SAE : 16/JUL/2012
     Route: 042
     Dates: start: 20120509
  17. DOXORUBICIN [Suspect]
     Active Substance: DOXORUBICIN
     Indication: DIFFUSE LARGE B-CELL LYMPHOMA
     Dosage: DOSE OF LAST DOXORUBICIN TAKEN : 68.5 MG, DATE OF MOST RECENT DOSE OF DOXORUBICIN: 16/JUL/2012
     Route: 042
     Dates: start: 20120509
  18. PREDNISOLONE. [Suspect]
     Active Substance: PREDNISOLONE
     Dosage: 1X100 MG
     Route: 048
     Dates: start: 20120616, end: 20120616
  19. KALIUM CHLORATUM [Concomitant]
     Active Substance: POTASSIUM CHLORIDE
     Route: 065
     Dates: start: 20120509, end: 20120513
  20. PARACETAMOLUM [Concomitant]
     Route: 065
     Dates: start: 20120716, end: 20120716
  21. FAMOTIDINE. [Concomitant]
     Active Substance: FAMOTIDINE
     Route: 065
     Dates: start: 20120716, end: 20120720
  22. ENOXAPARIN [Concomitant]
     Active Substance: ENOXAPARIN
     Indication: THROMBOSIS PROPHYLAXIS
     Dosage: 1X 40MG
     Route: 065
     Dates: start: 20120509, end: 20120516
  23. ALLOPURINOL. [Concomitant]
     Active Substance: ALLOPURINOL
     Indication: HYPERURICAEMIA
     Dosage: 2X100
     Route: 065
     Dates: start: 20120410
  24. DIMETINDENE [Concomitant]
     Dosage: 1X4 MG
     Route: 065
     Dates: start: 20120620, end: 20120620
  25. FAMOTIDINE. [Concomitant]
     Active Substance: FAMOTIDINE
     Indication: ULCER
     Dosage: 2X40 MG
     Route: 065
     Dates: start: 20120530, end: 20120604
  26. FAMOTIDINE. [Concomitant]
     Active Substance: FAMOTIDINE
     Dosage: 1X40 MG
     Route: 065
     Dates: start: 20120523, end: 20120529
  27. OBINUTUZUMAB [Suspect]
     Active Substance: OBINUTUZUMAB
     Indication: DIFFUSE LARGE B-CELL LYMPHOMA
     Dosage: VOLUME OF LAST OBINUTUZUMAB : 250 ML, DOSE CONCENTRATION OF LAST OBINUTUZUMAB : 1000MG/ML, MOST RECE
     Route: 042
     Dates: start: 20120509
  28. PREDNISOLONE. [Suspect]
     Active Substance: PREDNISOLONE
     Indication: DIFFUSE LARGE B-CELL LYMPHOMA
     Dosage: DOSE OF LAST PREDNISOLONE : 100 MG, DATE OF MOST RECENT DOSE PREDNISOLONE : 13/MAY/2012 AND 20/JUL/2
     Route: 048
     Dates: start: 20120509
  29. FUROSEMIDE. [Concomitant]
     Active Substance: FUROSEMIDE
     Indication: FLUID RETENTION
     Dosage: 1X40 MG
     Route: 065
     Dates: start: 20120410, end: 20120716
  30. FUROSEMIDE. [Concomitant]
     Active Substance: FUROSEMIDE
     Route: 065
     Dates: start: 20120720
  31. PARACETAMOLUM [Concomitant]
     Dosage: 1X1000MG
     Route: 065
     Dates: start: 20120509, end: 20120509
  32. FAMOTIDINE. [Concomitant]
     Active Substance: FAMOTIDINE
     Dosage: 2X40 MG
     Route: 065
     Dates: start: 20120620, end: 20120625
  33. VINCRISTINE [Suspect]
     Active Substance: VINCRISTINE
     Indication: DIFFUSE LARGE B-CELL LYMPHOMA
     Dosage: INTRAVENOUS PUSH, DOSE OF LAST VINCRISTINE TAKEN : 1.5 MG, DATE OF MOST RECENT DOSE PRIOR TO SAE : 1
     Route: 040
     Dates: start: 20120509
  34. KALIUM CHLORATUM [Concomitant]
     Active Substance: POTASSIUM CHLORIDE
     Indication: FLUID RETENTION
     Dosage: 2X600 MG
     Route: 065
     Dates: start: 20120410, end: 20120716
  35. KALIUM CHLORATUM [Concomitant]
     Active Substance: POTASSIUM CHLORIDE
     Dosage: 1X600 MG
     Route: 065
     Dates: start: 20120716, end: 20120720
  36. PARACETAMOLUM [Concomitant]
     Route: 065
     Dates: start: 20120516, end: 20120516
  37. MEROPENEM. [Concomitant]
     Active Substance: MEROPENEM
     Indication: FEBRILE NEUTROPENIA
     Dosage: 3X1 GR. IV
     Route: 065
     Dates: start: 20120523, end: 20120529
  38. AMOXICILLIN/CLAVULANIC ACID [Concomitant]
     Active Substance: AMOXICILLIN\CLAVULANIC ACID
     Indication: PNEUMONIA
     Dosage: 2X 1000MG
     Route: 065
     Dates: start: 20120410, end: 20120504

REACTIONS (2)
  - Febrile neutropenia [Fatal]
  - Neutropenia [Recovered/Resolved]

NARRATIVE: CASE EVENT DATE: 20120523
